FAERS Safety Report 24060505 (Version 1)
Quarter: 2024Q3

REPORT INFORMATION
  Report Type: Spontaneous
  Country: US (occurrence: US)
  Receive Date: 20240708
  Receipt Date: 20240708
  Transmission Date: 20241016
  Serious: Yes (Hospitalization)
  Sender: BAYER
  Company Number: US-BAYER-2024A095833

PATIENT
  Age: 18 Year
  Sex: Female

DRUGS (2)
  1. KYLEENA [Suspect]
     Active Substance: LEVONORGESTREL
     Indication: Intrauterine contraception
     Dosage: 17.5?G/DAY
     Route: 015
     Dates: start: 202406
  2. HUMIRA [Concomitant]
     Active Substance: ADALIMUMAB
     Indication: Crohn^s disease
     Route: 058

REACTIONS (3)
  - Clostridium difficile infection [None]
  - Joint swelling [None]
  - Arthralgia [Recovering/Resolving]

NARRATIVE: CASE EVENT DATE: 20240601
